FAERS Safety Report 24783132 (Version 1)
Quarter: 2024Q4

REPORT INFORMATION
  Report Type: Spontaneous
  Country: JP (occurrence: JP)
  Receive Date: 20241227
  Receipt Date: 20241227
  Transmission Date: 20250114
  Serious: Yes (Other)
  Sender: BAYER HEALTHCARE PHARMACEUTICALS INC.
  Company Number: JP-BAYER-2024A182922

PATIENT
  Age: 2 Decade
  Sex: Female

DRUGS (8)
  1. ADEMPAS [Suspect]
     Active Substance: RIOCIGUAT
     Dosage: 7.5 MG
  2. MACITENTAN [Concomitant]
     Active Substance: MACITENTAN
     Dosage: 10 MG
  3. TREPROSTINIL [Concomitant]
     Active Substance: TREPROSTINIL
     Dosage: 140 NG/KG/MIN
  4. EPOPROSTENOL [Concomitant]
     Active Substance: EPOPROSTENOL
     Dosage: 60 NG/KG/MIN
  5. EPOPROSTENOL [Concomitant]
     Active Substance: EPOPROSTENOL
     Dosage: 128 NG/KG/MIN
  6. SILDENAFIL [Concomitant]
     Active Substance: SILDENAFIL
     Dosage: 40 MG
  7. AMBRISENTAN [Concomitant]
     Active Substance: AMBRISENTAN
     Dosage: 5 MG
  8. TADALAFIL [Concomitant]
     Active Substance: TADALAFIL
     Dosage: 40 MG

REACTIONS (6)
  - Thyrotoxic crisis [None]
  - Headache [None]
  - Nausea [None]
  - Adverse reaction [None]
  - Device occlusion [None]
  - Treatment noncompliance [None]
